FAERS Safety Report 4268852-6 (Version None)
Quarter: 2004Q1

REPORT INFORMATION
  Report Type: 
  Country: None (occurrence: None)
  Receive Date: 20040113
  Receipt Date: 20031218
  Transmission Date: 20041129
  Serious: Yes (Death, Hospitalization)
  Sender: FDA-Public Use
  Company Number: 200322869GDDC

PATIENT
  Age: 74 Year
  Sex: Female

DRUGS (5)
  1. ARAVA [Suspect]
     Indication: RHEUMATOID ARTHRITIS
     Route: 048
     Dates: start: 19990813, end: 19991210
  2. DEXAMETHASONE [Concomitant]
     Indication: RHEUMATOID ARTHRITIS
     Route: 048
     Dates: start: 19990813, end: 19991210
  3. OS-CAL D [Concomitant]
     Indication: OSTEOPOROSIS
     Route: 048
     Dates: start: 19990106, end: 19991210
  4. EVISTA [Concomitant]
     Indication: OSTEOPOROSIS
     Route: 048
     Dates: start: 19990106, end: 19991211
  5. ANCORON [Concomitant]
     Indication: ARRHYTHMIA
     Route: 048
     Dates: start: 19980101, end: 19991211

REACTIONS (10)
  - ACUTE RESPIRATORY FAILURE [None]
  - ASTHENIA [None]
  - CHILLS [None]
  - DIARRHOEA [None]
  - LUNG CREPITATION [None]
  - NAUSEA [None]
  - PNEUMONIA STAPHYLOCOCCAL [None]
  - PYREXIA [None]
  - SEPSIS [None]
  - VOMITING [None]
